FAERS Safety Report 19908740 (Version 2)
Quarter: 2022Q2

REPORT INFORMATION
  Report Type: Spontaneous
  Country: CA (occurrence: CA)
  Receive Date: 20211001
  Receipt Date: 20220401
  Transmission Date: 20220720
  Serious: Yes (Hospitalization, Other)
  Sender: FDA-Public Use
  Company Number: CA-TEVA-2021-CA-1947193

PATIENT
  Age: 75 Year
  Sex: Male

DRUGS (45)
  1. CANDESARTAN CILEXETIL [Suspect]
     Active Substance: CANDESARTAN CILEXETIL
     Indication: Product used for unknown indication
     Route: 065
  2. CANDESARTAN CILEXETIL [Suspect]
     Active Substance: CANDESARTAN CILEXETIL
     Route: 065
  3. AMLODIPINE BESYLATE [Suspect]
     Active Substance: AMLODIPINE BESYLATE
     Indication: Product used for unknown indication
     Route: 065
  4. AMLODIPINE BESYLATE [Suspect]
     Active Substance: AMLODIPINE BESYLATE
     Indication: Cardiac failure
     Dosage: 10 MILLIGRAM DAILY;
     Route: 048
  5. AMIODARONE HYDROCHLORIDE [Suspect]
     Active Substance: AMIODARONE HYDROCHLORIDE
     Indication: Product used for unknown indication
     Route: 065
  6. AMIODARONE HYDROCHLORIDE [Suspect]
     Active Substance: AMIODARONE HYDROCHLORIDE
     Indication: Atrial fibrillation
     Route: 065
  7. AMIODARONE HYDROCHLORIDE [Suspect]
     Active Substance: AMIODARONE HYDROCHLORIDE
     Dosage: 200 MILLIGRAM DAILY;
     Route: 048
  8. DILTIAZEM HYDROCHLORIDE [Suspect]
     Active Substance: DILTIAZEM HYDROCHLORIDE
     Indication: Angina pectoris
     Dosage: 2.5 MILLIGRAM DAILY;
     Route: 048
  9. TAMSULOSIN [Suspect]
     Active Substance: TAMSULOSIN
     Indication: Product used for unknown indication
     Route: 065
  10. TAMSULOSIN [Suspect]
     Active Substance: TAMSULOSIN
     Indication: Prostatomegaly
     Route: 065
  11. TAMSULOSIN [Suspect]
     Active Substance: TAMSULOSIN
     Dosage: .4 MILLIGRAM DAILY;
     Route: 048
  12. METOPROLOL TARTRATE [Suspect]
     Active Substance: METOPROLOL TARTRATE
     Indication: Product used for unknown indication
     Route: 065
  13. METOPROLOL [Suspect]
     Active Substance: METOPROLOL
     Indication: Cardiac failure
     Dosage: 200 MILLIGRAM DAILY;
     Route: 048
  14. CANDESARTAN [Suspect]
     Active Substance: CANDESARTAN
     Indication: Cardiac failure
     Dosage: 4 MILLIGRAM DAILY;
     Route: 048
  15. AMLODIPINE [Suspect]
     Active Substance: AMLODIPINE BESYLATE
     Indication: Cardiac failure
     Dosage: 10 MILLIGRAM DAILY;
     Route: 048
  16. AMLODIPINE [Suspect]
     Active Substance: AMLODIPINE BESYLATE
     Dosage: 10 MILLIGRAM DAILY;
     Route: 048
  17. AMIODARONE [Suspect]
     Active Substance: AMIODARONE
     Indication: Atrial fibrillation
     Dosage: 200 MILLIGRAM DAILY;
     Route: 048
  18. FUROSEMIDE [Suspect]
     Active Substance: FUROSEMIDE
     Indication: Product used for unknown indication
     Route: 065
  19. FUROSEMIDE [Suspect]
     Active Substance: FUROSEMIDE
     Indication: Diuretic therapy
     Route: 065
  20. FUROSEMIDE [Suspect]
     Active Substance: FUROSEMIDE
     Dosage: 20 MILLIGRAM DAILY;
     Route: 048
  21. PRAMIPEXOLE DIHYDROCHLORIDE [Suspect]
     Active Substance: PRAMIPEXOLE DIHYDROCHLORIDE
     Indication: Product used for unknown indication
     Route: 065
  22. PRAMIPEXOLE DIHYDROCHLORIDE [Suspect]
     Active Substance: PRAMIPEXOLE DIHYDROCHLORIDE
     Indication: Restless legs syndrome
     Route: 048
  23. NITROGLYCERIN [Suspect]
     Active Substance: NITROGLYCERIN
     Indication: Product used for unknown indication
     Route: 065
  24. NITROGLYCERIN [Suspect]
     Active Substance: NITROGLYCERIN
     Indication: Angina pectoris
     Dosage: 1 MILLIGRAM DAILY;
     Route: 061
  25. JARDIANCE [Suspect]
     Active Substance: EMPAGLIFLOZIN
     Indication: Product used for unknown indication
     Route: 065
  26. JARDIANCE [Suspect]
     Active Substance: EMPAGLIFLOZIN
     Indication: Cardiac failure
     Route: 048
  27. JARDIANCE [Suspect]
     Active Substance: EMPAGLIFLOZIN
     Route: 048
  28. FLOMAX [Suspect]
     Active Substance: TAMSULOSIN HYDROCHLORIDE
     Indication: Prostatomegaly
     Dosage: .4 MILLIGRAM DAILY;
     Route: 048
  29. DILTIAZEM HYDROCHLORIDE [Suspect]
     Active Substance: DILTIAZEM HYDROCHLORIDE
     Indication: Angina pectoris
     Dosage: 2.5 MILLIGRAM DAILY;
     Route: 048
  30. MIRAPEX [Suspect]
     Active Substance: PRAMIPEXOLE DIHYDROCHLORIDE
     Indication: Restless legs syndrome
     Route: 048
  31. NITROGLYCERIN [Suspect]
     Active Substance: NITROGLYCERIN
     Indication: Angina pectoris
     Dosage: 1 MILLIGRAM DAILY;
     Route: 061
  32. PRAMIPEXOLE [Suspect]
     Active Substance: PRAMIPEXOLE
     Indication: Product used for unknown indication
     Route: 065
  33. PRAMIPEXOLE [Suspect]
     Active Substance: PRAMIPEXOLE
     Indication: Restless legs syndrome
     Route: 048
  34. BICALUTAMIDE [Concomitant]
     Active Substance: BICALUTAMIDE
     Indication: Neoplasm malignant
     Route: 065
  35. BICALUTAMIDE [Concomitant]
     Active Substance: BICALUTAMIDE
     Dosage: 50 MILLIGRAM DAILY;
     Route: 048
  36. CLOPIDOGREL [Concomitant]
     Active Substance: CLOPIDOGREL BISULFATE
     Indication: Cardiac failure
     Route: 065
  37. CLOPIDOGREL [Concomitant]
     Active Substance: CLOPIDOGREL BISULFATE
     Dosage: 75 MILLIGRAM DAILY;
     Route: 048
  38. EZETIMIBE [Concomitant]
     Active Substance: EZETIMIBE
     Indication: Dyslipidaemia
     Route: 065
  39. EZETIMIBE [Concomitant]
     Active Substance: EZETIMIBE
     Dosage: 10 MILLIGRAM DAILY;
     Route: 048
  40. RIVAROXABAN [Concomitant]
     Active Substance: RIVAROXABAN
     Indication: Coronary artery disease
     Route: 065
  41. RIVAROXABAN [Concomitant]
     Active Substance: RIVAROXABAN
     Dosage: 15 MILLIGRAM DAILY;
     Route: 048
  42. ROSUVASTATIN CALCIUM [Concomitant]
     Active Substance: ROSUVASTATIN CALCIUM
     Indication: Dyslipidaemia
     Route: 065
  43. ROSUVASTATIN CALCIUM [Concomitant]
     Active Substance: ROSUVASTATIN CALCIUM
     Dosage: 20 MILLIGRAM DAILY;
     Route: 048
  44. TRAZODONE [Concomitant]
     Active Substance: TRAZODONE HYDROCHLORIDE
     Indication: Antidepressant therapy
     Route: 065
  45. TRAZODONE [Concomitant]
     Active Substance: TRAZODONE HYDROCHLORIDE
     Dosage: 50 MILLIGRAM DAILY;
     Route: 048

REACTIONS (4)
  - Adrenal insufficiency [Not Recovered/Not Resolved]
  - Hyperthyroidism [Not Recovered/Not Resolved]
  - Hypotension [Not Recovered/Not Resolved]
  - Troponin increased [Not Recovered/Not Resolved]
